FAERS Safety Report 8620787-1 (Version None)
Quarter: 2012Q3

REPORT INFORMATION
  Report Type: 
  Country: None (occurrence: None)
  Receive Date: 20120824
  Receipt Date: 20120820
  Transmission Date: 20120928
  Serious: Yes (Death, Life-Threatening, Hospitalization, Disabling)
  Sender: FDA-Public Use
  Company Number: JP-ABBOTT-12P-087-0963750-00

PATIENT
  Sex: Female
  Weight: 30 kg

DRUGS (4)
  1. ACETAMINOPHEN [Suspect]
     Indication: PYREXIA
  2. CLARITHROMYCIN [Suspect]
     Indication: PYREXIA
  3. MUCODYNE [Suspect]
     Indication: PYREXIA
  4. ALUSA [Suspect]
     Indication: PYREXIA

REACTIONS (2)
  - TRANSPLANT FAILURE [None]
  - HEPATITIS FULMINANT [None]
